FAERS Safety Report 5502630-2 (Version None)
Quarter: 2007Q4

REPORT INFORMATION
  Report Type: 
  Country: None (occurrence: None)
  Receive Date: 20071031
  Receipt Date: 20071026
  Transmission Date: 20080405
  Serious: Yes (Other)
  Sender: FDA-Public Use
  Company Number: ES-JNJFOC-20071007591

PATIENT
  Age: 8 Year
  Sex: Male

DRUGS (2)
  1. RISPERIDONE [Suspect]
     Indication: TRISOMY 21
     Route: 048
  2. RUBIFEN [Suspect]
     Indication: TRISOMY 21

REACTIONS (2)
  - GYNAECOMASTIA [None]
  - OFF LABEL USE [None]
